FAERS Safety Report 10267058 (Version 1)
Quarter: 2014Q2

REPORT INFORMATION
  Report Type: Spontaneous
  Country: GB (occurrence: GB)
  Receive Date: 20140630
  Receipt Date: 20140630
  Transmission Date: 20141212
  Serious: Yes (Other)
  Sender: FDA-Public Use
  Company Number: GB-AMGEN INC.-GBRSP2014047745

PATIENT
  Age: 78 Year
  Sex: Female
  Weight: 57 kg

DRUGS (9)
  1. PROLIA [Suspect]
     Indication: OSTEOPOROSIS
     Dosage: UNK
     Route: 058
     Dates: start: 20140427, end: 20140427
  2. ATENOLOL [Concomitant]
     Dosage: 50 MG, QD
  3. ATORVASTATIN [Concomitant]
     Dosage: 20 MG, QD
  4. EPREX [Concomitant]
     Indication: DIALYSIS
     Dosage: AS NECESSARY
  5. FELODIPINE [Concomitant]
     Dosage: 20 MG, QD
  6. IRBESARTAN [Concomitant]
     Dosage: 300 MG, UNK
  7. IRON [Concomitant]
     Indication: DIALYSIS
     Dosage: AS NECESSARY
  8. MOVICOL                            /01625101/ [Concomitant]
     Dosage: AS NECESSARY
  9. PARACETAMOL [Concomitant]
     Dosage: AS NECESSARY

REACTIONS (2)
  - Hyperparathyroidism secondary [Not Recovered/Not Resolved]
  - Hypocalcaemia [Not Recovered/Not Resolved]
